FAERS Safety Report 4274776-0 (Version None)
Quarter: 2004Q1

REPORT INFORMATION
  Report Type: 
  Country: None (occurrence: None)
  Receive Date: 20040120
  Receipt Date: 20031114
  Transmission Date: 20041129
  Serious: Yes (Disabling)
  Sender: FDA-Public Use
  Company Number: GB-BRISTOL-MYERS SQUIBB COMPANY-12435483

PATIENT
  Age: 65 Year
  Sex: Male
  Weight: 87 kg

DRUGS (2)
  1. CISPLATIN [Suspect]
     Indication: BLADDER CANCER
     Dates: start: 20031008, end: 20031008
  2. GEMCITABINE [Suspect]
     Indication: BLADDER CANCER
     Dates: start: 20031014, end: 20031014

REACTIONS (1)
  - DEEP VEIN THROMBOSIS [None]
